FAERS Safety Report 13205587 (Version 1)
Quarter: 2017Q1

REPORT INFORMATION
  Report Type: Report from Study
  Country: US (occurrence: US)
  Receive Date: 20170209
  Receipt Date: 20170209
  Transmission Date: 20170428
  Serious: Yes (Death, Hospitalization, Other)
  Sender: FDA-Public Use
  Company Number: US-009507513-1612USA005032

PATIENT
  Sex: Male
  Weight: 50.7 kg

DRUGS (3)
  1. KEYTRUDA [Suspect]
     Active Substance: PEMBROLIZUMAB
     Indication: HEAD AND NECK CANCER METASTATIC
     Dosage: 2 MG/KG, Q3W
     Route: 042
     Dates: start: 20151124, end: 20160721
  2. FENTANYL. [Concomitant]
     Active Substance: FENTANYL
  3. MORPHINE [Concomitant]
     Active Substance: MORPHINE

REACTIONS (3)
  - Dyspnoea [Unknown]
  - Procedural complication [Unknown]
  - Malignant neoplasm progression [Fatal]
